FAERS Safety Report 6530225-0 (Version None)
Quarter: 2010Q1

REPORT INFORMATION
  Report Type: 
  Country: None (occurrence: None)
  Receive Date: 20100107
  Receipt Date: 20100105
  Transmission Date: 20100710
  Serious: Yes (Life-Threatening, Hospitalization, Other)
  Sender: FDA-Public Use
  Company Number: MX-PFIZER INC-2007055608

PATIENT
  Age: 21 Year
  Sex: Female
  Weight: 49 kg

DRUGS (5)
  1. PREGABALIN [Suspect]
     Indication: EPILEPSY
     Dosage: 75 MG, 2X/DAY
     Route: 048
     Dates: start: 20070503, end: 20070705
  2. PREDNISONE [Concomitant]
     Route: 048
     Dates: start: 20070622, end: 20070705
  3. NIMODIPINE [Concomitant]
     Route: 048
     Dates: start: 20070622, end: 20070705
  4. FLUOXETINE [Concomitant]
     Route: 048
     Dates: start: 20060101, end: 20070705
  5. DIFENIDOL [Concomitant]
     Route: 048
     Dates: start: 20070622, end: 20070622

REACTIONS (4)
  - LABYRINTHITIS [None]
  - PNEUMONIA [None]
  - SINUSITIS [None]
  - STATUS EPILEPTICUS [None]
